FAERS Safety Report 9913503 (Version 1)
Quarter: 2014Q1

REPORT INFORMATION
  Report Type: Report from Study
  Country: US (occurrence: US)
  Receive Date: 20140220
  Receipt Date: 20140220
  Transmission Date: 20141002
  Serious: Yes (Hospitalization, Other)
  Sender: FDA-Public Use
  Company Number: US-PURDUE-USA-2014-0111253

PATIENT
  Sex: Male

DRUGS (2)
  1. OXY CR TAB [Suspect]
     Indication: BACK PAIN
     Dosage: UNK
     Dates: start: 2010
  2. OXY CR TAB [Suspect]
     Indication: NEURITIS
     Dosage: 80MG, 1-2 TABLETS EVERY 12 HOURS
     Route: 048
     Dates: start: 20131126

REACTIONS (3)
  - Haematochezia [Unknown]
  - Investigation [Unknown]
  - Mass [Unknown]
